FAERS Safety Report 5326594-X (Version None)
Quarter: 2007Q2

REPORT INFORMATION
  Report Type: 
  Country: None (occurrence: None)
  Receive Date: 20070426
  Receipt Date: 20070410
  Transmission Date: 20071010
  Serious: Yes (Other)
  Sender: FDA-Public Use
  Company Number: AELIT07-001

PATIENT
  Age: 31 Year
  Sex: Female

DRUGS (1)
  1. MIXED ALLERGENIC EXTRACTS AT 1:100 DILUTION [Suspect]
     Indication: MULTIPLE ALLERGIES
     Dosage: 6 DROPS SUBLINGUALLY
     Route: 060

REACTIONS (3)
  - GAIT DISTURBANCE [None]
  - OEDEMA PERIPHERAL [None]
  - PRURITUS GENERALISED [None]
